FAERS Safety Report 7171321-7 (Version None)
Quarter: 2010Q4

REPORT INFORMATION
  Report Type: 
  Country: None (occurrence: None)
  Receive Date: 20101217
  Receipt Date: 20101208
  Transmission Date: 20110411
  Serious: Yes (Hospitalization)
  Sender: FDA-Public Use
  Company Number: FR-ASTRAZENECA-2010SE58450

PATIENT
  Sex: Female

DRUGS (9)
  1. CRESTOR [Suspect]
     Route: 048
     Dates: start: 20091101, end: 20100119
  2. LASIX [Concomitant]
     Route: 048
  3. HYPERIUM [Concomitant]
     Route: 048
  4. NOVONORM [Concomitant]
     Route: 048
  5. SPECIAFOLDINE [Concomitant]
     Route: 048
  6. KARDEGIC [Concomitant]
     Route: 048
  7. CARDENSIEL [Concomitant]
     Route: 048
  8. MIRCERA [Concomitant]
     Route: 048
  9. TAHOR [Concomitant]
     Route: 048
     Dates: end: 20101101

REACTIONS (3)
  - RENAL FAILURE ACUTE [None]
  - RENAL FAILURE CHRONIC [None]
  - RHABDOMYOLYSIS [None]
